FAERS Safety Report 8574267 (Version 2)
Quarter: 2014Q3

REPORT INFORMATION
  Report Type: Spontaneous
  Country: US (occurrence: US)
  Receive Date: 20120522
  Receipt Date: 20140814
  Transmission Date: 20150326
  Serious: Yes (Hospitalization)
  Sender: FDA-Public Use
  Company Number: US-ASTRAZENECA-2012SE29308

PATIENT
  Age: 73 Year
  Sex: Male
  Weight: 88 kg

DRUGS (7)
  1. ATENOLOL. [Concomitant]
     Active Substance: ATENOLOL
  2. CRESTOR [Suspect]
     Active Substance: ROSUVASTATIN CALCIUM
     Route: 048
  3. PRILOSEC [Suspect]
     Active Substance: OMEPRAZOLE MAGNESIUM
     Indication: GASTROOESOPHAGEAL REFLUX DISEASE
     Route: 048
     Dates: start: 1994, end: 2011
  4. LISINOPRIL. [Concomitant]
     Active Substance: LISINOPRIL
  5. LEPIDINE [Concomitant]
  6. NEXIUM [Suspect]
     Active Substance: ESOMEPRAZOLE MAGNESIUM
     Indication: GASTROOESOPHAGEAL REFLUX DISEASE
     Route: 048
  7. VYTORIN [Suspect]
     Active Substance: EZETIMIBE\SIMVASTATIN
     Route: 065

REACTIONS (5)
  - Malaise [Recovered/Resolved]
  - Adverse event [Unknown]
  - Fatigue [Recovered/Resolved]
  - Malaise [Unknown]
  - Blood cholesterol abnormal [Unknown]

NARRATIVE: CASE EVENT DATE: 201108
